FAERS Safety Report 21457387 (Version 1)
Quarter: 2022Q4

REPORT INFORMATION
  Report Type: Spontaneous
  Country: GB (occurrence: GB)
  Receive Date: 20221014
  Receipt Date: 20221014
  Transmission Date: 20230113
  Serious: Yes (Other)
  Sender: FDA-Public Use
  Company Number: None

PATIENT

DRUGS (1)
  1. DONEPEZIL [Suspect]
     Active Substance: DONEPEZIL
     Indication: Dementia Alzheimer^s type
     Dosage: 5MG ONCE A DAY IN THE EVENING; ;
     Route: 065
     Dates: start: 20220913, end: 20221004

REACTIONS (1)
  - Bradycardia [Not Recovered/Not Resolved]
